FAERS Safety Report 6940235-7 (Version None)
Quarter: 2010Q3

REPORT INFORMATION
  Report Type: 
  Country: None (occurrence: None)
  Receive Date: 20100825
  Receipt Date: 20100813
  Transmission Date: 20110219
  Serious: Yes (Hospitalization, Other)
  Sender: FDA-Public Use
  Company Number: US-ELI_LILLY_AND_COMPANY-US201008003918

PATIENT
  Age: 68 Year
  Sex: Female

DRUGS (3)
  1. HUMALOG MIX 75/25 [Suspect]
     Indication: TYPE 2 DIABETES MELLITUS
     Dosage: 20 U, EACH MORNING
  2. HUMALOG MIX 75/25 [Suspect]
     Dosage: 15 U, EACH EVENING
  3. HUMULIN R [Suspect]
     Indication: TYPE 2 DIABETES MELLITUS

REACTIONS (3)
  - BREAST CANCER [None]
  - CARDIAC OPERATION [None]
  - LEG AMPUTATION [None]
